FAERS Safety Report 13500706 (Version 2)
Quarter: 2017Q2

REPORT INFORMATION
  Report Type: Report from Study
  Country: US (occurrence: US)
  Receive Date: 20170501
  Receipt Date: 20170612
  Transmission Date: 20170830
  Serious: Yes (Hospitalization)
  Sender: FDA-Public Use
  Company Number: US-ACTELION-A-NJ2015-124248

PATIENT
  Age: 65 Year
  Sex: Female
  Weight: 75.28 kg

DRUGS (2)
  1. VELETRI [Suspect]
     Active Substance: EPOPROSTENOL
     Indication: PULMONARY ARTERIAL HYPERTENSION
     Dosage: 6 NG/KG, PER MIN
     Route: 042
     Dates: start: 20150804
  2. SILDENAFIL. [Concomitant]
     Active Substance: SILDENAFIL

REACTIONS (6)
  - Upper respiratory tract infection [Unknown]
  - Headache [Unknown]
  - Sinus disorder [Unknown]
  - Pain in jaw [Unknown]
  - Flushing [Unknown]
  - Dyspnoea exertional [Unknown]
